FAERS Safety Report 18018756 (Version 1)
Quarter: 2020Q3

REPORT INFORMATION
  Report Type: Spontaneous
  Country: US (occurrence: US)
  Receive Date: 20200713
  Receipt Date: 20200713
  Transmission Date: 20201103
  Serious: No
  Sender: FDA-Public Use
  Company Number: None

PATIENT
  Age: 28 Year
  Sex: Male
  Weight: 80 kg

DRUGS (1)
  1. ARIPIPRAZOLE (ARIPIPRAZOLE 5MG TAB) [Suspect]
     Active Substance: ARIPIPRAZOLE
     Indication: DEPRESSION
     Route: 048
     Dates: start: 20190826, end: 20190828

REACTIONS (2)
  - Agitation [None]
  - Palpitations [None]

NARRATIVE: CASE EVENT DATE: 20190828
